FAERS Safety Report 18068859 (Version 1)
Quarter: 2020Q3

REPORT INFORMATION
  Report Type: Spontaneous
  Country: FR (occurrence: FR)
  Receive Date: 20200725
  Receipt Date: 20200725
  Transmission Date: 20201103
  Serious: Yes (Hospitalization)
  Sender: FDA-Public Use
  Company Number: FR-ACCORD-192255

PATIENT
  Age: 12 Year
  Sex: Male
  Weight: 42 kg

DRUGS (4)
  1. CYTARABINE/CYTARABINE HYDROCHLORIDE/CYTARABINE OCFOSFATE [Concomitant]
     Active Substance: CYTARABINE
     Indication: BURKITT^S LYMPHOMA
     Route: 042
     Dates: start: 20200619, end: 20200623
  2. CYTARABINE/CYTARABINE HYDROCHLORIDE/CYTARABINE OCFOSFATE [Concomitant]
     Active Substance: CYTARABINE
     Indication: BURKITT^S LYMPHOMA
     Route: 037
     Dates: start: 20200624, end: 20200624
  3. METHOTREXATE. [Suspect]
     Active Substance: METHOTREXATE
     Indication: BURKITT^S LYMPHOMA
     Route: 037
     Dates: start: 20200619, end: 20200619
  4. METHOTREXATE. [Suspect]
     Active Substance: METHOTREXATE
     Indication: BURKITT^S LYMPHOMA
     Route: 042
     Dates: start: 20200618, end: 20200618

REACTIONS (3)
  - Leukoencephalopathy [Recovered/Resolved]
  - Hemiparaesthesia [Recovered/Resolved]
  - Dysarthria [Recovered/Resolved]

NARRATIVE: CASE EVENT DATE: 20200630
